FAERS Safety Report 24309788 (Version 2)
Quarter: 2025Q2

REPORT INFORMATION
  Report Type: Report from Study
  Country: US (occurrence: US)
  Receive Date: 20240912
  Receipt Date: 20250501
  Transmission Date: 20250716
  Serious: Yes (Other)
  Sender: AUROBINDO
  Company Number: US-AUROBINDO-AUR-APL-2024-044310

PATIENT
  Age: 21 Year
  Sex: Female

DRUGS (2)
  1. NADOLOL [Suspect]
     Active Substance: NADOLOL
     Indication: Ventricular tachycardia
     Dosage: 60 MILLIGRAM, ONCE A DAY
     Route: 065
  2. FLECAINIDE [Suspect]
     Active Substance: FLECAINIDE
     Indication: Ventricular tachycardia
     Dosage: 100 MILLIGRAM, TWO TIMES A DAY
     Route: 065

REACTIONS (1)
  - Drug ineffective [Unknown]
